FAERS Safety Report 24062580 (Version 3)
Quarter: 2024Q3

REPORT INFORMATION
  Report Type: Spontaneous
  Country: JP (occurrence: JP)
  Receive Date: 20240708
  Receipt Date: 20240712
  Transmission Date: 20241017
  Serious: Yes (Hospitalization, Other)
  Sender: BOEHRINGER INGELHEIM
  Company Number: JP-NBI-2024-BI-038274

PATIENT
  Age: 77 Year
  Sex: Male

DRUGS (1)
  1. DABIGATRAN ETEXILATE MESYLATE [Suspect]
     Active Substance: DABIGATRAN ETEXILATE MESYLATE
     Indication: Product used for unknown indication
     Route: 048

REACTIONS (3)
  - Cerebral infarction [Unknown]
  - Spinal cord infarction [Unknown]
  - Venous occlusion [Unknown]
